FAERS Safety Report 9087647 (Version 1)
Quarter: 2013Q1

REPORT INFORMATION
  Report Type: Report from Study
  Country: US (occurrence: US)
  Receive Date: 20130131
  Receipt Date: 20130131
  Transmission Date: 20140127
  Serious: No
  Sender: FDA-Public Use
  Company Number: US-ABBOTT-12P-163-0995255-00

PATIENT
  Age: 61 Year
  Sex: Female

DRUGS (15)
  1. HUMIRA [Suspect]
     Indication: PSORIATIC ARTHROPATHY
     Dates: start: 2009, end: 2010
  2. VITAMIN B COMPLEX [Concomitant]
     Indication: PRODUCT USED FOR UNKNOWN INDICATION
  3. MULTIPLE VITAMIN FOR WOMEN [Concomitant]
     Indication: PRODUCT USED FOR UNKNOWN INDICATION
  4. CITRACAL [Concomitant]
     Indication: PRODUCT USED FOR UNKNOWN INDICATION
  5. METHOTREXATE [Concomitant]
     Indication: PROSTATIC SPECIFIC ANTIGEN
     Dosage: 25MG/ML
  6. METHOTREXATE [Concomitant]
     Indication: RHEUMATOID ARTHRITIS
  7. CITALOPRAM [Concomitant]
     Indication: DEPRESSION
  8. BENAZEPRIL [Concomitant]
     Indication: BLOOD PRESSURE
  9. TRIAMT/HCTZ [Concomitant]
     Indication: BLOOD PRESSURE
     Dosage: 37.5/25MG
  10. FOLIC ACID [Concomitant]
     Indication: PROSTATIC SPECIFIC ANTIGEN
  11. FOLIC ACID [Concomitant]
     Indication: RHEUMATOID ARTHRITIS
  12. METFORMIN ER [Concomitant]
     Indication: DIABETES MELLITUS
  13. AMTHET/EEXT-SUL [Concomitant]
     Indication: ATTENTION DEFICIT/HYPERACTIVITY DISORDER
  14. OXYCONTIN [Concomitant]
     Indication: PAIN
  15. OXYCODONE [Concomitant]
     Indication: PAIN
     Dosage: 1 EVERY 4-6 HOURS

REACTIONS (4)
  - Rheumatoid arthritis [Unknown]
  - Drug ineffective [Unknown]
  - Alopecia [Unknown]
  - Restless legs syndrome [Unknown]
